FAERS Safety Report 9640438 (Version 1)
Quarter: 2013Q4

REPORT INFORMATION
  Report Type: Spontaneous
  Country: US (occurrence: None)
  Receive Date: 20131021
  Receipt Date: 20131021
  Transmission Date: 20140711
  Serious: Yes (Hospitalization)
  Sender: FDA-Public Use
  Company Number: DOXY20130004

PATIENT
  Age: 21 Year
  Sex: Female

DRUGS (2)
  1. DOXYCYCLINE HYCLATE 100MG (DOXYCYCLINE HYDROCHLORIDE) (100 MILLIGRAM, TABLETS) (DOXYCYCLINE HYDROCHLORIDE) [Suspect]
     Indication: UPPER RESPIRATORY TRACT INFECTION
     Route: 048
  2. CELEXA (CITALOOPRAM HYDROBROMIDE) (TABLETS) (CITALOPRAM HYDROBROMIDE) [Concomitant]
     Indication: UPPER RESPIRATORY TRACT INFECTION

REACTIONS (1)
  - Pancreatitis [None]
